FAERS Safety Report 7987626-3 (Version None)
Quarter: 2011Q4

REPORT INFORMATION
  Report Type: 
  Country: None (occurrence: None)
  Receive Date: 20111216
  Receipt Date: 20101109
  Transmission Date: 20120403
  Serious: No
  Sender: FDA-Public Use
  Company Number: US-BRISTOL-MYERS SQUIBB COMPANY-15269095

PATIENT
  Age: 69 Year
  Sex: Female
  Weight: 74 kg

DRUGS (7)
  1. WELLBUTRIN [Concomitant]
  2. NEXIUM [Concomitant]
  3. ABILIFY [Suspect]
     Indication: DEPRESSION
  4. GLUCOTROL [Concomitant]
  5. METFORMIN HCL [Concomitant]
  6. VENLAFAXINE HCL [Concomitant]
  7. PRAVACHOL [Concomitant]

REACTIONS (4)
  - DRUG INEFFECTIVE [None]
  - INSOMNIA [None]
  - HEADACHE [None]
  - NERVOUSNESS [None]
